FAERS Safety Report 8891069 (Version 4)
Quarter: 2013Q2

REPORT INFORMATION
  Report Type: Spontaneous
  Country: US (occurrence: US)
  Receive Date: 20121107
  Receipt Date: 20130423
  Transmission Date: 20140414
  Serious: Yes (Life-Threatening, Hospitalization)
  Sender: FDA-Public Use
  Company Number: US-BRISTOL-MYERS SQUIBB COMPANY-17079567

PATIENT
  Age: 75 Year
  Sex: Male

DRUGS (7)
  1. YERVOY [Suspect]
     Indication: MALIGNANT MELANOMA
     Dosage: 2 DOSES; CUMULATIVE DOSE 6MG/KG,?ON DAY1,22; LAST DOSE:19JUL2011
     Route: 042
     Dates: start: 20110629
  2. PREDNISONE [Concomitant]
  3. KEPPRA [Concomitant]
  4. ASACOL [Concomitant]
  5. IRON [Concomitant]
  6. PRILOSEC [Concomitant]
  7. CIPRO [Concomitant]

REACTIONS (3)
  - T-cell lymphoma [Recovering/Resolving]
  - Rash [Unknown]
  - Colitis [Unknown]
